FAERS Safety Report 24034364 (Version 1)
Quarter: 2024Q2

REPORT INFORMATION
  Report Type: Spontaneous
  Country: US (occurrence: None)
  Receive Date: 20240628
  Receipt Date: 20240628
  Transmission Date: 20240716
  Serious: No
  Sender: FDA-Public Use
  Company Number: None

PATIENT
  Age: 46 Year
  Sex: Female

DRUGS (1)
  1. ADEMPAS [Suspect]
     Active Substance: RIOCIGUAT
     Indication: Pulmonary hypertension
     Dosage: 1MG TID ORAL
     Route: 048
     Dates: start: 20210621

REACTIONS (6)
  - Inappropriate schedule of product administration [None]
  - Pyrexia [None]
  - Flushing [None]
  - Headache [None]
  - Feeling of body temperature change [None]
  - Therapy cessation [None]

NARRATIVE: CASE EVENT DATE: 20240625
